FAERS Safety Report 5939841-8 (Version None)
Quarter: 2008Q4

REPORT INFORMATION
  Report Type: 
  Country: None (occurrence: None)
  Receive Date: 20081030
  Receipt Date: 20081030
  Transmission Date: 20090506
  Serious: Yes (Other)
  Sender: FDA-Public Use
  Company Number: None

PATIENT
  Age: 60 Year
  Sex: Female
  Weight: 102.0593 kg

DRUGS (3)
  1. OMEPRAZOLE [Suspect]
     Indication: GASTROOESOPHAGEAL REFLUX DISEASE
     Dosage: 20 MG CAPSULE DRAPO 1/DAY ORAL 047
     Route: 048
     Dates: start: 20080831, end: 20080905
  2. LEXAPRO [Concomitant]
  3. PROVIGIL [Concomitant]

REACTIONS (3)
  - CHEST PAIN [None]
  - JOINT SWELLING [None]
  - PARAESTHESIA [None]
